FAERS Safety Report 9952887 (Version 2)
Quarter: 2014Q1

REPORT INFORMATION
  Report Type: Report from Study
  Country: US (occurrence: US)
  Receive Date: 20140304
  Receipt Date: 20140304
  Transmission Date: 20141002
  Serious: No
  Sender: FDA-Public Use
  Company Number: US-ABBVIE-13P-163-1063761-00

PATIENT
  Age: 45 Year
  Sex: Female

DRUGS (6)
  1. HUMIRA [Suspect]
     Indication: CROHN^S DISEASE
     Dosage: LOADING DOSE
     Route: 058
     Dates: start: 20130314
  2. HUMIRA [Suspect]
     Dosage: DAY 15
     Route: 058
  3. HUMIRA [Suspect]
     Dosage: DAY 29
     Route: 058
  4. LOMOTIL [Concomitant]
  5. ENTOCORT [Concomitant]
  6. NEXIUM [Concomitant]

REACTIONS (7)
  - Tinnitus [Recovered/Resolved]
  - Injection site pain [Recovered/Resolved]
  - Injection site erythema [Recovered/Resolved]
  - Dizziness [Recovered/Resolved]
  - Headache [Not Recovered/Not Resolved]
  - Injection site pruritus [Recovering/Resolving]
  - Diarrhoea [Recovering/Resolving]
